FAERS Safety Report 5126841-3 (Version None)
Quarter: 2006Q4

REPORT INFORMATION
  Report Type: 
  Country: None (occurrence: None)
  Receive Date: 20061013
  Receipt Date: 20061002
  Transmission Date: 20070319
  Serious: Yes (Hospitalization)
  Sender: FDA-Public Use
  Company Number: US-BRISTOL-MYERS SQUIBB COMPANY-13533146

PATIENT
  Sex: Female

DRUGS (1)
  1. TEQUIN [Suspect]
     Route: 048
     Dates: start: 20020925

REACTIONS (1)
  - HYPOGLYCAEMIA [None]
